FAERS Safety Report 8826423 (Version 1)
Quarter: 2012Q4

REPORT INFORMATION
  Report Type: Report from Study
  Country: GB (occurrence: GB)
  Receive Date: 20121008
  Receipt Date: 20121008
  Transmission Date: 20130627
  Serious: Yes (Other)
  Sender: FDA-Public Use
  Company Number: GB-AMGEN-GBRCT2012001938

PATIENT
  Age: 75 Year
  Sex: Female
  Weight: 54 kg

DRUGS (14)
  1. ETANERCEPT [Suspect]
     Indication: RHEUMATOID ARTHRITIS
     Dosage: 25 mg, 2x/week
     Dates: start: 20070122, end: 20110314
  2. VENTOLIN                           /00139501/ [Concomitant]
     Dosage: UNK
  3. SALMETEROL [Concomitant]
     Dosage: UNK
  4. FLUTICASONE [Concomitant]
     Dosage: UNK
  5. TIOTROPIUM [Concomitant]
     Dosage: UNK
  6. LOSARTAN [Concomitant]
     Dosage: UNK
  7. ACETYLSALICYLIC ACID [Concomitant]
     Dosage: UNK
  8. SIMVASTATIN [Concomitant]
     Dosage: UNK
  9. BONVIVA [Concomitant]
     Dosage: UNK
  10. ADCAL                              /00056901/ [Concomitant]
     Dosage: UNK
  11. LANSOPRAZOLE [Concomitant]
     Dosage: UNK
  12. QUININE SULPHATE [Concomitant]
     Dosage: UNK
  13. CO-DYDRAMOL [Concomitant]
     Dosage: UNK
  14. PARACETAMOL [Concomitant]
     Dosage: UNK

REACTIONS (2)
  - White blood cell count decreased [Recovered/Resolved]
  - Neutropenia [Recovered/Resolved]
